FAERS Safety Report 5717128-6 (Version None)
Quarter: 2008Q2

REPORT INFORMATION
  Report Type: 
  Country: None (occurrence: None)
  Receive Date: 20080423
  Receipt Date: 20080414
  Transmission Date: 20081010
  Serious: Yes (Other)
  Sender: FDA-Public Use
  Company Number: JPI-P-002285

PATIENT
  Age: 43 Year
  Sex: Female
  Weight: 73.9363 kg

DRUGS (4)
  1. XYREM [Suspect]
     Dosage: WAS ON XYREM FOR 2-3 WEEKS, ORAL; 8.5  4.25, 2 IN 1 D, ORAL
     Route: 048
     Dates: start: 20070101, end: 20070918
  2. XYREM [Suspect]
     Dosage: WAS ON XYREM FOR 2-3 WEEKS, ORAL; 8.5  4.25, 2 IN 1 D, ORAL
     Route: 048
     Dates: start: 20080301
  3. DIAZEPAM [Concomitant]
  4. ALPRAZOLAM [Concomitant]

REACTIONS (13)
  - ABDOMINAL PAIN UPPER [None]
  - ANXIETY [None]
  - ASTHENIA [None]
  - BLOOD PRESSURE ABNORMAL [None]
  - DARK CIRCLES UNDER EYES [None]
  - DEHYDRATION [None]
  - DISTURBANCE IN ATTENTION [None]
  - HYPERHIDROSIS [None]
  - MALAISE [None]
  - NAUSEA [None]
  - PALPITATIONS [None]
  - RASH ERYTHEMATOUS [None]
  - SWELLING FACE [None]
